FAERS Safety Report 12982775 (Version 1)
Quarter: 2016Q4

REPORT INFORMATION
  Report Type: Spontaneous
  Country: BR (occurrence: BR)
  Receive Date: 20161129
  Receipt Date: 20161129
  Transmission Date: 20170207
  Serious: Yes (Hospitalization)
  Sender: FDA-Public Use
  Company Number: BR-PFIZER INC-2016549598

PATIENT
  Sex: Female

DRUGS (2)
  1. VFEND [Suspect]
     Active Substance: VORICONAZOLE
     Dosage: 4 DF, DAILY (ON FIRST DAY)
  2. VFEND [Suspect]
     Active Substance: VORICONAZOLE
     Dosage: 2 DF, DAILY

REACTIONS (1)
  - Acute lymphocytic leukaemia [Unknown]
